FAERS Safety Report 7673032-8 (Version None)
Quarter: 2011Q3

REPORT INFORMATION
  Report Type: 
  Country: None (occurrence: None)
  Receive Date: 20110809
  Receipt Date: 20110802
  Transmission Date: 20111222
  Serious: Yes (Other)
  Sender: FDA-Public Use
  Company Number: PHHY2011GB69732

PATIENT
  Age: 65 Year
  Sex: Female

DRUGS (1)
  1. OMEPRAZOLE [Suspect]
     Dosage: 20 MG, UNK
     Route: 048
     Dates: start: 20110501

REACTIONS (2)
  - COUGH [None]
  - ASTHMA [None]
